FAERS Safety Report 14375126 (Version 1)
Quarter: 2018Q1

REPORT INFORMATION
  Report Type: Spontaneous
  Country: DE (occurrence: DE)
  Receive Date: 20180111
  Receipt Date: 20180111
  Transmission Date: 20180509
  Serious: Yes (Other)
  Sender: FDA-Public Use
  Company Number: DE-TORRENT-00007599

PATIENT
  Age: 37 Year
  Sex: Male
  Weight: 145 kg

DRUGS (2)
  1. RISPERIDONE. [Suspect]
     Active Substance: RISPERIDONE
     Indication: SCHIZOPHRENIA
     Dosage: DOSE REDUCED TO 3MG
     Route: 048
  2. ARIPIPRAZOLE. [Suspect]
     Active Substance: ARIPIPRAZOLE
     Indication: SCHIZOPHRENIA
     Dosage: DOSE INCREASED TO 15MG
     Route: 048

REACTIONS (2)
  - Tachycardia [Recovered/Resolved]
  - Hypertension [Recovered/Resolved]
